FAERS Safety Report 9624248 (Version 4)
Quarter: 2013Q4

REPORT INFORMATION
  Report Type: Spontaneous
  Country: JP (occurrence: JP)
  Receive Date: 20131015
  Receipt Date: 20131210
  Transmission Date: 20140711
  Serious: Yes (Other)
  Sender: FDA-Public Use
  Company Number: JP-PFIZER INC-2013293166

PATIENT
  Age: 78 Year
  Sex: Female

DRUGS (10)
  1. CELECOX [Suspect]
     Dosage: 200 MG, DAILY
     Route: 048
  2. VESICARE [Suspect]
     Dosage: 5 MG, 1X/DAY
     Route: 048
     Dates: start: 20130909
  3. BENIDIPINE HYDROCHLORIDE [Concomitant]
     Dosage: UNK
  4. BLOPRESS [Concomitant]
     Dosage: UNK
  5. RABEPRAZOLE SODIUM [Concomitant]
     Dosage: UNK
  6. MERCAZOLE [Concomitant]
     Dosage: UNK
  7. MYONAL [Concomitant]
     Dosage: UNK
     Route: 048
  8. HALCION [Concomitant]
     Dosage: UNK
  9. MUCOSTA [Concomitant]
     Dosage: UNK
     Route: 048
  10. PRORENAL [Concomitant]
     Dosage: UNK

REACTIONS (2)
  - Abnormal sensation in eye [Unknown]
  - Visual impairment [Unknown]
